FAERS Safety Report 9324065 (Version 1)
Quarter: 2013Q2

REPORT INFORMATION
  Report Type: Report from Study
  Country: US (occurrence: US)
  Receive Date: 20130603
  Receipt Date: 20130603
  Transmission Date: 20140414
  Serious: Yes (Hospitalization, Other)
  Sender: FDA-Public Use
  Company Number: PHEH2013US009696

PATIENT
  Sex: Female
  Weight: 77.98 kg

DRUGS (11)
  1. GILENYA [Suspect]
     Indication: MULTIPLE SCLEROSIS
     Dosage: 0.5 MG, QD
     Route: 048
     Dates: start: 20121204
  2. ZANAFLEX [Suspect]
  3. AMANTADINE HCL [Concomitant]
     Dosage: 100 MG, UNK
     Route: 048
  4. BACLOFEN [Concomitant]
     Dosage: 10 MG, UNK
     Route: 048
  5. CITALOPRAM HYDROBROMIDE [Concomitant]
     Dosage: 20 MG, UNK
     Route: 048
  6. DETROL LA [Concomitant]
     Dosage: 4 MG, UNK
     Route: 048
  7. DOXEPIN HCL [Concomitant]
     Dosage: 100 MG, UNK
     Route: 048
  8. FLURAZEPAM HCL [Concomitant]
     Dosage: 30 MG, UNK
     Route: 048
  9. NEURONTIN [Concomitant]
     Dosage: 800 MG, UNK
     Route: 048
  10. THIOTHIXENE [Concomitant]
     Dosage: 5 MG, UNK
     Route: 048
  11. TRAZODONE HCL [Concomitant]
     Dosage: 100 MG, UNK
     Route: 048

REACTIONS (4)
  - Emotional disorder [Recovering/Resolving]
  - Hepatic steatosis [Recovering/Resolving]
  - Hepatic enzyme increased [Recovering/Resolving]
  - Pain in extremity [Recovering/Resolving]
